FAERS Safety Report 5086173-9 (Version None)
Quarter: 2006Q3

REPORT INFORMATION
  Report Type: 
  Country: None (occurrence: None)
  Receive Date: 20060818
  Receipt Date: 20060808
  Transmission Date: 20061208
  Serious: Yes (Other)
  Sender: FDA-Public Use
  Company Number: 2006097226

PATIENT
  Age: 66 Year
  Sex: Female

DRUGS (2)
  1. SERTRALINE [Suspect]
     Indication: DRUG USE FOR UNKNOWN INDICATION
     Dosage: ORAL
     Route: 048
  2. VITAMIN B (VITAMIN B) [Suspect]
     Indication: PROPHYLAXIS
     Dosage: ORAL
     Route: 048

REACTIONS (3)
  - DEPRESSED MOOD [None]
  - DRUG INTERACTION [None]
  - MORBID THOUGHTS [None]
